FAERS Safety Report 6253779-0 (Version None)
Quarter: 2009Q2

REPORT INFORMATION
  Report Type: 
  Country: None (occurrence: None)
  Receive Date: 20090630
  Receipt Date: 20090616
  Transmission Date: 20091009
  Serious: Yes (Hospitalization, Other)
  Sender: FDA-Public Use
  Company Number: RENA-1000448

PATIENT
  Age: 40 Year
  Sex: Male

DRUGS (4)
  1. RENAGEL [Suspect]
     Indication: HYPERPHOSPHATAEMIA
     Dosage: 6.4 G,; 4 G,; 4.8 G,; 5.6,; 7.2 G, TID,
  2. ERYTHROPOETIN (EPOETIN ALFA) [Concomitant]
  3. CINACALCET (CINACALCET) [Concomitant]
  4. CALCIUM CARBONATE (CALCIUM CARBONATE) [Concomitant]

REACTIONS (9)
  - CONDITION AGGRAVATED [None]
  - FINGER AMPUTATION [None]
  - FOOT AMPUTATION [None]
  - IMPAIRED HEALING [None]
  - NECROSIS [None]
  - PERIPHERAL ISCHAEMIA [None]
  - SKIN ULCER [None]
  - SUPERINFECTION [None]
  - TOE AMPUTATION [None]
